FAERS Safety Report 13664038 (Version 1)
Quarter: 2017Q2

REPORT INFORMATION
  Report Type: Spontaneous
  Country: US (occurrence: US)
  Receive Date: 20170618
  Receipt Date: 20170618
  Transmission Date: 20170830
  Serious: Yes (Hospitalization, Disabling)
  Sender: FDA-Public Use
  Company Number: None

PATIENT
  Age: 58 Year
  Sex: Female
  Weight: 66.6 kg

DRUGS (2)
  1. XANAX [Suspect]
     Active Substance: ALPRAZOLAM
     Indication: HYPERTENSION
  2. XANAX [Suspect]
     Active Substance: ALPRAZOLAM
     Indication: STRESS

REACTIONS (17)
  - Mental disorder [None]
  - Blood pressure increased [None]
  - Personality change [None]
  - Suicidal ideation [None]
  - Hypoaesthesia [None]
  - Insomnia [None]
  - Fatigue [None]
  - Abulia [None]
  - Headache [None]
  - Dyskinesia [None]
  - Suicide attempt [None]
  - Fall [None]
  - Bipolar disorder [None]
  - Muscle twitching [None]
  - Panic attack [None]
  - Impaired work ability [None]
  - Drug detoxification [None]

NARRATIVE: CASE EVENT DATE: 20100104
